FAERS Safety Report 13469561 (Version 1)
Quarter: 2017Q2

REPORT INFORMATION
  Report Type: Spontaneous
  Country: US (occurrence: US)
  Receive Date: 20170421
  Receipt Date: 20170421
  Transmission Date: 20170830
  Serious: Yes (Other)
  Sender: FDA-Public Use
  Company Number: US-INTERNATIONAL MEDICATION SYSTEMS, LIMITED-1065698

PATIENT
  Age: 39 Year
  Sex: Female

DRUGS (1)
  1. EPINEPHRINE. [Suspect]
     Active Substance: EPINEPHRINE
     Indication: WRONG DRUG ADMINISTERED
     Route: 042

REACTIONS (2)
  - Wrong drug administered [Unknown]
  - Hypertension [Unknown]

NARRATIVE: CASE EVENT DATE: 20170324
